FAERS Safety Report 5597309-5 (Version None)
Quarter: 2008Q1

REPORT INFORMATION
  Report Type: 
  Country: None (occurrence: None)
  Receive Date: 20080121
  Receipt Date: 20080110
  Transmission Date: 20080703
  Serious: Yes (Other)
  Sender: FDA-Public Use
  Company Number: HQWYE385403AUG07

PATIENT
  Sex: Female

DRUGS (7)
  1. PANTOZOL [Suspect]
     Indication: HELICOBACTER GASTRITIS
     Route: 048
     Dates: start: 20070309, end: 20070314
  2. CLARITHROMYCIN [Suspect]
     Indication: HELICOBACTER GASTRITIS
     Route: 048
     Dates: start: 20070309, end: 20070314
  3. RANITIDINE [Concomitant]
     Route: 048
  4. VERAPAMIL [Concomitant]
     Indication: ESSENTIAL HYPERTENSION
     Route: 048
  5. HYDROCHLOROTHIAZIDE [Concomitant]
     Indication: ESSENTIAL HYPERTENSION
     Route: 048
  6. AMOXICILLIN TRIHYDRATE [Suspect]
     Indication: HELICOBACTER GASTRITIS
     Route: 048
     Dates: start: 20070309, end: 20070314
  7. RENITEC [Concomitant]
     Indication: ESSENTIAL HYPERTENSION
     Route: 048

REACTIONS (2)
  - ANGIOEDEMA [None]
  - BRONCHOSPASM [None]
